FAERS Safety Report 5992572-0 (Version None)
Quarter: 2008Q4

REPORT INFORMATION
  Report Type: 
  Country: None (occurrence: None)
  Receive Date: 20081211
  Receipt Date: 20080522
  Transmission Date: 20090506
  Serious: No
  Sender: FDA-Public Use
  Company Number: US-AMGEN-KDL267249

PATIENT
  Sex: Female
  Weight: 77.2 kg

DRUGS (2)
  1. ENBREL [Suspect]
     Indication: RHEUMATOID ARTHRITIS
     Route: 058
     Dates: start: 20080219
  2. AZATHIOPRINE [Concomitant]
     Dates: start: 20060601

REACTIONS (3)
  - BACK PAIN [None]
  - INJECTION SITE PAIN [None]
  - SUBCUTANEOUS ABSCESS [None]
